FAERS Safety Report 12279914 (Version 2)
Quarter: 2016Q2

REPORT INFORMATION
  Report Type: Spontaneous
  Country: BR (occurrence: BR)
  Receive Date: 20160418
  Receipt Date: 20160427
  Transmission Date: 20160815
  Serious: Yes (Hospitalization)
  Sender: FDA-Public Use
  Company Number: BR-BIOMARINAP-BR-2016-109470

PATIENT
  Age: 11 Year
  Sex: Female
  Weight: 28 kg

DRUGS (4)
  1. DIGESAN                            /00576701/ [Concomitant]
     Indication: PRODUCT USED FOR UNKNOWN INDICATION
     Dosage: UNK
     Dates: start: 20160403
  2. NAGLAZYME [Suspect]
     Active Substance: GALSULFASE
     Indication: MUCOPOLYSACCHARIDOSIS VI
     Dosage: 25 MG, QW
     Route: 042
     Dates: start: 20070927
  3. FLORATIL                           /00838001/ [Concomitant]
     Indication: PRODUCT USED FOR UNKNOWN INDICATION
     Dosage: UNK
     Dates: start: 20160403
  4. DIPYRONE [Concomitant]
     Active Substance: DIPYRONE
     Indication: PRODUCT USED FOR UNKNOWN INDICATION
     Dosage: UNK
     Dates: start: 20160403

REACTIONS (4)
  - Nausea [Recovering/Resolving]
  - Pyrexia [Recovering/Resolving]
  - Vomiting [Recovering/Resolving]
  - Viral infection [Recovering/Resolving]

NARRATIVE: CASE EVENT DATE: 20160403
